FAERS Safety Report 9445807 (Version 1)
Quarter: 2013Q3

REPORT INFORMATION
  Report Type: Spontaneous
  Country: CA (occurrence: CA)
  Receive Date: 20130807
  Receipt Date: 20130807
  Transmission Date: 20140515
  Serious: Yes (Death, Hospitalization)
  Sender: FDA-Public Use
  Company Number: CA-B.I. PHARMACEUTICALS,INC./RIDGEFIELD-2013-CN-01405CN

PATIENT
  Sex: Male

DRUGS (1)
  1. TRAJENTA [Suspect]

REACTIONS (1)
  - Death [Fatal]
